FAERS Safety Report 8167870-5 (Version None)
Quarter: 2012Q1

REPORT INFORMATION
  Report Type: 
  Country: None (occurrence: None)
  Receive Date: 20120227
  Receipt Date: 20120217
  Transmission Date: 20120608
  Serious: Yes (Hospitalization)
  Sender: FDA-Public Use
  Company Number: US-BAYER-2012-017028

PATIENT
  Age: 50 Year
  Sex: Female

DRUGS (2)
  1. YAZ [Suspect]
     Dosage: UNK
     Dates: start: 20080401, end: 20110601
  2. REMICADE [Concomitant]

REACTIONS (1)
  - DEEP VEIN THROMBOSIS [None]
